FAERS Safety Report 12553116 (Version 4)
Quarter: 2016Q3

REPORT INFORMATION
  Report Type: Spontaneous
  Country: US (occurrence: US)
  Receive Date: 20160713
  Receipt Date: 20160808
  Transmission Date: 20161109
  Serious: Yes (Other)
  Sender: FDA-Public Use
  Company Number: US-CELGENEUS-USA-2016072054

PATIENT
  Sex: Female
  Weight: 55.84 kg

DRUGS (1)
  1. REVLIMID [Suspect]
     Active Substance: LENALIDOMIDE
     Indication: PLASMA CELL MYELOMA
     Dosage: 25 MILLIGRAM
     Route: 048
     Dates: start: 20151014

REACTIONS (6)
  - Pancreatic disorder [Not Recovered/Not Resolved]
  - Hepatomegaly [Not Recovered/Not Resolved]
  - Neck pain [Not Recovered/Not Resolved]
  - Local swelling [Unknown]
  - Influenza [Not Recovered/Not Resolved]
  - Osteoporosis [Not Recovered/Not Resolved]
